FAERS Safety Report 6431623-6 (Version None)
Quarter: 2009Q4

REPORT INFORMATION
  Report Type: 
  Country: None (occurrence: None)
  Receive Date: 20091106
  Receipt Date: 20091026
  Transmission Date: 20100525
  Serious: Yes (Death, Life-Threatening, Hospitalization)
  Sender: FDA-Public Use
  Company Number: JP-AMGEN-US361842

PATIENT
  Sex: Female

DRUGS (16)
  1. ENBREL [Suspect]
     Indication: RHEUMATOID ARTHRITIS
     Route: 058
     Dates: start: 20080804, end: 20090803
  2. ENBREL [Suspect]
     Dosage: LYOPHILIZED: 25 MG TWICE WEEKLY
     Route: 058
     Dates: start: 20070611, end: 20080731
  3. METHYLPREDNISOLONE 4MG TAB [Suspect]
     Indication: RHEUMATOID ARTHRITIS
     Route: 048
     Dates: start: 20070112
  4. METHYLPREDNISOLONE 4MG TAB [Suspect]
     Route: 048
     Dates: start: 20070202, end: 20070622
  5. METHYLPREDNISOLONE 4MG TAB [Suspect]
     Route: 048
     Dates: start: 20070623, end: 20080521
  6. METHYLPREDNISOLONE 4MG TAB [Suspect]
     Route: 048
     Dates: start: 20080522, end: 20090805
  7. MOBIC [Concomitant]
     Route: 048
     Dates: start: 20070611, end: 20090805
  8. PARIET [Concomitant]
     Route: 048
  9. OLMETEC [Concomitant]
     Route: 048
  10. JUSO [Concomitant]
     Route: 048
     Dates: start: 20070601
  11. BONALON [Concomitant]
     Route: 048
  12. KALIMATE [Concomitant]
     Route: 048
  13. KLARICID [Concomitant]
     Route: 048
  14. MUCODYNE [Concomitant]
     Route: 048
     Dates: start: 20070104
  15. FLUITRAN [Concomitant]
     Route: 048
     Dates: start: 20080110
  16. TORASEMIDE [Concomitant]
     Route: 048

REACTIONS (7)
  - ALTERED STATE OF CONSCIOUSNESS [None]
  - CARDIO-RESPIRATORY ARREST [None]
  - LUNG INFECTION PSEUDOMONAL [None]
  - NERVOUS SYSTEM DISORDER [None]
  - PNEUMONIA ESCHERICHIA [None]
  - RENAL FAILURE ACUTE [None]
  - RESPIRATORY FAILURE [None]
